FAERS Safety Report 8952541 (Version 1)
Quarter: 2012Q4

REPORT INFORMATION
  Report Type: Report from Study
  Country: BR (occurrence: BR)
  Receive Date: 20121205
  Receipt Date: 20121205
  Transmission Date: 20130627
  Serious: Yes (Other)
  Sender: FDA-Public Use
  Company Number: BR-US-EMD SERONO, INC.-7178548

PATIENT
  Sex: Female

DRUGS (1)
  1. REBIF [Suspect]
     Indication: PRODUCT USED FOR UNKNOWN INDICATION
     Dates: start: 20040524, end: 20120130

REACTIONS (4)
  - Expanded disability status scale score increased [Unknown]
  - Central nervous system lesion [Unknown]
  - Secondary progressive multiple sclerosis [Unknown]
  - Drug ineffective [Unknown]
